FAERS Safety Report 6719824-0 (Version None)
Quarter: 2010Q2

REPORT INFORMATION
  Report Type: 
  Country: None (occurrence: None)
  Receive Date: 20100511
  Receipt Date: 20100429
  Transmission Date: 20101027
  Serious: Yes (Hospitalization, Other)
  Sender: FDA-Public Use
  Company Number: PHHY2010DE28129

PATIENT
  Sex: Female

DRUGS (2)
  1. RASILEZ [Suspect]
     Dosage: 300 MG/DAY
  2. SPIRONOLACTONE [Concomitant]

REACTIONS (3)
  - BLOOD POTASSIUM INCREASED [None]
  - HIP SURGERY [None]
  - RENAL FAILURE ACUTE [None]
